FAERS Safety Report 26022717 (Version 1)
Quarter: 2025Q4

REPORT INFORMATION
  Report Type: Other
  Country: EU (occurrence: EU)
  Receive Date: 20251110
  Receipt Date: 20251110
  Transmission Date: 20260117
  Serious: Yes (Other)
  Sender: MILLICENT HOLDINGS
  Company Number: EU-Millicent Holdings Ltd.-MILL20250318

PATIENT
  Sex: Male

DRUGS (2)
  1. ESTRADIOL [Suspect]
     Active Substance: ESTRADIOL
     Indication: Transgender hormonal therapy
     Dosage: UNKNOWN
     Route: 062
  2. CYPROTERONE [Suspect]
     Active Substance: CYPROTERONE
     Indication: Transgender hormonal therapy
     Dosage: 50 MG/12 H
     Route: 065

REACTIONS (4)
  - Meningioma benign [Recovering/Resolving]
  - Optic atrophy [Recovering/Resolving]
  - Visual impairment [Recovering/Resolving]
  - Headache [Recovering/Resolving]
